FAERS Safety Report 10379194 (Version 3)
Quarter: 2014Q3

REPORT INFORMATION
  Report Type: Spontaneous
  Country: JP (occurrence: JP)
  Receive Date: 20140812
  Receipt Date: 20140902
  Transmission Date: 20150326
  Serious: Yes (Hospitalization)
  Sender: FDA-Public Use
  Company Number: JP-GLAXOSMITHKLINE-B1022196A

PATIENT
  Age: 86 Year
  Sex: Female
  Weight: 53 kg

DRUGS (8)
  1. LOXONIN [Suspect]
     Active Substance: LOXOPROFEN SODIUM
     Indication: PAIN IN JAW
     Route: 048
     Dates: start: 20140728, end: 20140803
  2. MINOMYCIN [Concomitant]
     Active Substance: MINOCYCLINE HYDROCHLORIDE
     Indication: DERMATITIS BULLOUS
     Dosage: 100MG PER DAY
     Route: 065
     Dates: start: 20140801, end: 20140803
  3. MAGLAX [Concomitant]
     Active Substance: MAGNESIUM OXIDE
     Route: 048
  4. MEIACT [Concomitant]
     Active Substance: CEFDITOREN PIVOXIL
     Indication: PAIN IN JAW
     Route: 048
     Dates: start: 20140728, end: 20140801
  5. VALTREX [Suspect]
     Active Substance: VALACYCLOVIR HYDROCHLORIDE
     Indication: HERPES ZOSTER
     Dosage: 1000MG THREE TIMES PER DAY
     Route: 048
     Dates: start: 20140801, end: 20140803
  6. BLOPRESS [Concomitant]
     Active Substance: CANDESARTAN CILEXETIL
     Indication: HYPERTENSION
     Dosage: 4MG PER DAY
     Route: 048
     Dates: end: 20140803
  7. MEVALOTIN [Concomitant]
     Active Substance: PRAVASTATIN SODIUM
     Indication: HYPERTENSION
     Dosage: 5MG TWICE PER DAY
     Route: 048
     Dates: start: 20140801, end: 20140803
  8. ALOSITOL [Concomitant]
     Active Substance: ALLOPURINOL
     Indication: HYPERTENSION
     Route: 048

REACTIONS (6)
  - Dyslalia [Recovered/Resolved]
  - Dizziness [Recovering/Resolving]
  - Altered state of consciousness [Recovered/Resolved]
  - Renal disorder [Recovering/Resolving]
  - CSF protein increased [Recovering/Resolving]
  - Toxic encephalopathy [Recovering/Resolving]

NARRATIVE: CASE EVENT DATE: 201408
